FAERS Safety Report 8463734-8 (Version None)
Quarter: 2012Q2

REPORT INFORMATION
  Report Type: 
  Country: None (occurrence: None)
  Receive Date: 20120625
  Receipt Date: 20120610
  Transmission Date: 20120825
  Serious: Yes (Other)
  Sender: FDA-Public Use
  Company Number: CHPA2012US004795

PATIENT
  Age: 41 Year
  Sex: Female

DRUGS (1)
  1. EXCEDRIN (MIGRAINE) [Suspect]
     Dosage: UNK, EVERYDAY
     Route: 048

REACTIONS (6)
  - PAIN [None]
  - DRUG DEPENDENCE [None]
  - HEADACHE [None]
  - PANIC REACTION [None]
  - INCORRECT DRUG ADMINISTRATION DURATION [None]
  - FEELING ABNORMAL [None]
